FAERS Safety Report 25274619 (Version 1)
Quarter: 2025Q2

REPORT INFORMATION
  Report Type: Report from Study
  Country: US (occurrence: US)
  Receive Date: 20250506
  Receipt Date: 20250506
  Transmission Date: 20250717
  Serious: Yes (Hospitalization, Other)
  Sender: ALEXION PHARMACEUTICALS
  Company Number: US-AstraZeneca-CH-00859067A

PATIENT

DRUGS (1)
  1. ULTOMIRIS [Suspect]
     Active Substance: RAVULIZUMAB-CWVZ
     Indication: Myasthenia gravis

REACTIONS (10)
  - Urinary bladder haemorrhage [Unknown]
  - Myocardial necrosis marker increased [Unknown]
  - Malaise [Unknown]
  - Urinary tract infection [Unknown]
  - Large intestine infection [Unknown]
  - Large intestine polyp [Unknown]
  - Rash [Not Recovered/Not Resolved]
  - Pain [Unknown]
  - Asthenia [Unknown]
  - Infection [Unknown]
